FAERS Safety Report 5338541-5 (Version None)
Quarter: 2007Q2

REPORT INFORMATION
  Report Type: 
  Country: None (occurrence: None)
  Receive Date: 20070530
  Receipt Date: 20070518
  Transmission Date: 20071010
  Serious: Yes (Life-Threatening, Hospitalization, Other)
  Sender: FDA-Public Use
  Company Number: GB-GILEAD-2007-0012200

PATIENT
  Age: 28 Year
  Sex: Female
  Weight: 47 kg

DRUGS (6)
  1. TRUVADA [Suspect]
     Route: 048
     Dates: start: 20060727, end: 20070404
  2. KALETRA [Concomitant]
     Route: 048
     Dates: start: 20060727, end: 20070404
  3. DIAZEPAM [Concomitant]
     Route: 048
     Dates: start: 20070301, end: 20070404
  4. CO-TRIMOXAZOLE [Concomitant]
     Route: 048
     Dates: start: 20060815, end: 20070404
  5. METHADONE HCL [Concomitant]
     Route: 048
     Dates: start: 20061001, end: 20070404
  6. ZOPICLONE [Concomitant]
     Route: 048
     Dates: start: 20060815, end: 20070404

REACTIONS (4)
  - DIARRHOEA [None]
  - GRAND MAL CONVULSION [None]
  - RENAL FAILURE ACUTE [None]
  - VOMITING [None]
